FAERS Safety Report 14266115 (Version 3)
Quarter: 2018Q1

REPORT INFORMATION
  Report Type: Spontaneous
  Country: IT (occurrence: IT)
  Receive Date: 20171210
  Receipt Date: 20180323
  Transmission Date: 20180508
  Serious: Yes (Hospitalization)
  Sender: FDA-Public Use
  Company Number: IT-CONCORDIA PHARMACEUTICALS INC.-E2B_00008707

PATIENT
  Age: 67 Year
  Sex: Female

DRUGS (4)
  1. COUMADIN [Suspect]
     Active Substance: WARFARIN SODIUM
     Indication: ATRIAL FIBRILLATION
  2. LANOXIN [Suspect]
     Active Substance: DIGOXIN
     Indication: ATRIAL FIBRILLATION
  3. ALPRAZOLAM. [Suspect]
     Active Substance: ALPRAZOLAM
  4. TRIATEC [Concomitant]
     Active Substance: RAMIPRIL

REACTIONS (7)
  - Syncope [Unknown]
  - Vomiting [Unknown]
  - Decreased appetite [Unknown]
  - International normalised ratio increased [Unknown]
  - Diarrhoea [Unknown]
  - Toxicity to various agents [Unknown]
  - Accidental overdose [Unknown]

NARRATIVE: CASE EVENT DATE: 20170901
